FAERS Safety Report 5097582-6 (Version None)
Quarter: 2006Q3

REPORT INFORMATION
  Report Type: 
  Country: None (occurrence: None)
  Receive Date: 20060901
  Receipt Date: 20060822
  Transmission Date: 20061208
  Serious: Yes (Other)
  Sender: FDA-Public Use
  Company Number: 147237USA

PATIENT
  Age: 14 Year
  Sex: Male

DRUGS (1)
  1. ATENOLOL [Suspect]
     Dates: start: 20060101

REACTIONS (4)
  - ANGIONEUROTIC OEDEMA [None]
  - PRURITUS [None]
  - RASH [None]
  - RESPIRATORY TRACT CONGESTION [None]
